FAERS Safety Report 24722579 (Version 1)
Quarter: 2024Q4

REPORT INFORMATION
  Report Type: Report from Study
  Country: JP (occurrence: JP)
  Receive Date: 20241211
  Receipt Date: 20241211
  Transmission Date: 20250114
  Serious: Yes (Other)
  Sender: GUERBET
  Company Number: JP-GUERBETG_JAPAN-JP-20240163

PATIENT
  Age: 73 Year
  Sex: Male

DRUGS (3)
  1. LIPIODOL [Suspect]
     Active Substance: ETHIODIZED OIL
     Indication: Lymphangiogram
     Dosage: INJECTED AT A RATE OF 0.2-0.5 ML/MIN FOR LYMPHANGIOGRAPHY; DOSE OF NBCA-LIPIODOL MIXTURE (WITH NBCA
     Route: 027
     Dates: start: 20240523, end: 20240523
  2. LIPIODOL [Suspect]
     Active Substance: ETHIODIZED OIL
     Indication: Therapeutic embolisation
     Dosage: A DOSE RANGED FROM 0.5 TO 3 ML (MEDIAN 1.5 ML) OF NBCA-LIPIODOL MIXTURE (WITH NBCA CONCENTRATION OF
     Route: 027
     Dates: start: 20240523, end: 20240523
  3. ENBUCRILATE [Suspect]
     Active Substance: ENBUCRILATE
     Indication: Therapeutic embolisation
     Dosage: A DOSE RANGED FROM 0.5 TO 3 ML (MEDIAN 1.5 ML) OF NBCA-LIPIODOL MIXTURE (WITH NBCA CONCENTRATION OF
     Route: 027
     Dates: start: 20240523, end: 20240523

REACTIONS (2)
  - Product use in unapproved indication [Recovering/Resolving]
  - Infection [Recovering/Resolving]

NARRATIVE: CASE EVENT DATE: 20240523
